FAERS Safety Report 9252489 (Version 1)
Quarter: 2013Q2

REPORT INFORMATION
  Report Type: Spontaneous
  Country: US (occurrence: US)
  Receive Date: 20130424
  Receipt Date: 20130424
  Transmission Date: 20140414
  Serious: Yes (Hospitalization, Other)
  Sender: FDA-Public Use
  Company Number: US-UCBSA-084134

PATIENT
  Age: 69 Year
  Sex: Male

DRUGS (1)
  1. CARBIDOPA/L-DOPA [Suspect]
     Indication: PARKINSON^S DISEASE
     Dosage: 25/100 MG; 3 TIMES A DAY

REACTIONS (3)
  - Catecholamines urine [Recovered/Resolved]
  - Intestinal mass [Unknown]
  - Dehydration [None]
